FAERS Safety Report 11211421 (Version 1)
Quarter: 2015Q2

REPORT INFORMATION
  Report Type: Spontaneous
  Country: VE (occurrence: None)
  Receive Date: 20150619
  Receipt Date: 20150619
  Transmission Date: 20150821
  Serious: No
  Sender: FDA-Public Use
  Company Number: VE-LHC-2015071

PATIENT
  Sex: Male

DRUGS (1)
  1. OXIGENO MEDICINAL (OXYGEN) (INHALATION GAS) (OXYGEN) (VERUM) [Suspect]
     Active Substance: OXYGEN
     Indication: DRUG THERAPY
     Route: 055
     Dates: start: 20150529, end: 20150529

REACTIONS (3)
  - Product odour abnormal [None]
  - Syncope [None]
  - Product quality issue [None]

NARRATIVE: CASE EVENT DATE: 20150529
